FAERS Safety Report 5196467-4 (Version None)
Quarter: 2006Q4

REPORT INFORMATION
  Report Type: 
  Country: None (occurrence: None)
  Receive Date: 20061227
  Receipt Date: 20061212
  Transmission Date: 20070319
  Serious: Yes (Other)
  Sender: FDA-Public Use
  Company Number: A-JP2006-13818

PATIENT
  Age: 60 Year
  Sex: Female
  Weight: 44 kg

DRUGS (10)
  1. TRACLEER (BOSENTAN) TABLET 62.5 MG [Suspect]
     Indication: PULMONARY HYPERTENSION
     Dosage: SEE IMAGE
     Dates: start: 20060120, end: 20060706
  2. TRACLEER (BOSENTAN) TABLET 62.5 MG [Suspect]
     Indication: PULMONARY HYPERTENSION
     Dosage: SEE IMAGE
     Dates: start: 20060101
  3. BERAPROST (BERAPROST) [Concomitant]
  4. PREDNISOLONE ACETATE [Concomitant]
  5. SILDENAFIL CITRATE [Concomitant]
  6. RISEDRONATE SODIUM [Concomitant]
  7. URSODIOL [Concomitant]
  8. LANSOPRAZOLE [Concomitant]
  9. LEVOTHYROXINE SODIUM [Concomitant]
  10. OXYGEN (OXYGEN) [Concomitant]

REACTIONS (1)
  - PLATELET COUNT DECREASED [None]
